FAERS Safety Report 4668909-1 (Version None)
Quarter: 2005Q2

REPORT INFORMATION
  Report Type: 
  Country: None (occurrence: None)
  Receive Date: 20050523
  Receipt Date: 20041202
  Transmission Date: 20051028
  Serious: Yes (Other)
  Sender: FDA-Public Use
  Company Number: PHBS2004BR16297

PATIENT

DRUGS (1)
  1. ZOMETA [Suspect]
     Indication: BREAST CANCER METASTATIC
     Route: 042

REACTIONS (6)
  - ASEPTIC NECROSIS BONE [None]
  - OSTEOMYELITIS [None]
  - PAIN IN JAW [None]
  - PYREXIA [None]
  - TOOTH DISORDER [None]
  - WOUND DEBRIDEMENT [None]
